FAERS Safety Report 20058196 (Version 2)
Quarter: 2022Q3

REPORT INFORMATION
  Report Type: Spontaneous
  Country: DE (occurrence: DE)
  Receive Date: 20211111
  Receipt Date: 20220713
  Transmission Date: 20221027
  Serious: Yes (Hospitalization, Other)
  Sender: FDA-Public Use
  Company Number: DE-GSKCCFEMEA-Case-01345772_AE-51389

PATIENT

DRUGS (1)
  1. FLUTICASONE PROPIONATE\SALMETEROL XINAFOATE [Suspect]
     Active Substance: FLUTICASONE PROPIONATE\SALMETEROL XINAFOATE
     Indication: Asthma
     Dosage: 50/250 ?G

REACTIONS (5)
  - Pneumonia [Unknown]
  - Pneumonitis [Unknown]
  - Bronchial ulceration [Unknown]
  - Respiratory disorder [Unknown]
  - Bronchitis [Unknown]
